FAERS Safety Report 5749846-8 (Version None)
Quarter: 2008Q2

REPORT INFORMATION
  Report Type: 
  Country: None (occurrence: None)
  Receive Date: 20080527
  Receipt Date: 20080520
  Transmission Date: 20081010
  Serious: Yes (Hospitalization)
  Sender: FDA-Public Use
  Company Number: FR-ELI_LILLY_AND_COMPANY-FR200805004212

PATIENT
  Age: 57 Year
  Sex: Female

DRUGS (7)
  1. FORTEO [Suspect]
     Indication: OSTEOPOROSIS
     Dosage: 20 UG, DAILY (1/D)
     Route: 058
     Dates: start: 20080325
  2. ISOPTIN [Concomitant]
  3. PLAVIX [Concomitant]
  4. PAROXETINE HCL [Concomitant]
  5. TORENTAL [Concomitant]
  6. BRONCHODUAL [Concomitant]
  7. CONTRAMAL [Concomitant]

REACTIONS (1)
  - RESPIRATORY FAILURE [None]
